FAERS Safety Report 23665769 (Version 5)
Quarter: 2024Q3

REPORT INFORMATION
  Report Type: Spontaneous
  Country: US (occurrence: None)
  Receive Date: 20240323
  Receipt Date: 20240821
  Transmission Date: 20241016
  Serious: No
  Sender: ASTRAZENECA
  Company Number: 2024A058717

PATIENT
  Age: 19381 Day
  Sex: Female
  Weight: 88 kg

DRUGS (2)
  1. FASENRA [Suspect]
     Active Substance: BENRALIZUMAB
     Dosage: 30MG/ML EVERY FOUR WEEKS
     Route: 058
     Dates: start: 202402
  2. FASENRA [Suspect]
     Active Substance: BENRALIZUMAB
     Dosage: 30MG/ML EVERY FOUR WEEKS
     Route: 058
     Dates: start: 20240207

REACTIONS (4)
  - Injection site haemorrhage [Recovered/Resolved]
  - Device leakage [Recovered/Resolved]
  - Incorrect dose administered by device [Unknown]
  - Device malfunction [Recovered/Resolved]

NARRATIVE: CASE EVENT DATE: 20240318
